FAERS Safety Report 24638047 (Version 1)
Quarter: 2024Q4

REPORT INFORMATION
  Report Type: Spontaneous
  Country: GB (occurrence: GB)
  Receive Date: 20241119
  Receipt Date: 20241119
  Transmission Date: 20250115
  Serious: Yes (Life-Threatening, Other)
  Sender: PFIZER
  Company Number: None

PATIENT
  Age: 15 Year
  Sex: Male
  Weight: 45 kg

DRUGS (35)
  1. LINEZOLID [Suspect]
     Active Substance: LINEZOLID
     Indication: Disseminated tuberculosis
     Dosage: 600 MG BD
     Route: 048
     Dates: end: 20241019
  2. ALFACALCIDOL [Concomitant]
     Active Substance: ALFACALCIDOL
     Dosage: 250 NG, EVERY 24 HOURS
     Route: 048
  3. ALTEPLASE [Concomitant]
     Active Substance: ALTEPLASE
     Dosage: 2MG IN 2ML FOR LINE PATENCY, 2 ML, IV LINE LOCK, AS REQUIRED
  4. BISOPROLOL [Concomitant]
     Active Substance: BISOPROLOL
     Dosage: 3.75 MG, 1X/DAY
     Route: 048
  5. CHLOROTHIAZIDE [Concomitant]
     Active Substance: CHLOROTHIAZIDE
     Dosage: 250 MG, ENTERAL
  6. AMOXICILLIN\CLAVULANATE POTASSIUM [Concomitant]
     Active Substance: AMOXICILLIN\CLAVULANATE POTASSIUM
     Dosage: 500/125, 1 TABLET(S), ORAL, THREE TIMES A DAY
     Route: 048
  7. CHOLECALCIFEROL [Concomitant]
     Active Substance: CHOLECALCIFEROL
     Dosage: 800 IU, 1X/DAY
     Route: 048
  8. CYCLIZINE [Concomitant]
     Active Substance: CYCLIZINE
     Dosage: 50 MG,  IN THE EVENING
     Route: 048
  9. CYCLOSERINE [Concomitant]
     Active Substance: CYCLOSERINE
     Dosage: 500 MG, 1X/DAY
     Route: 048
  10. DARBEPOETIN ALFA [Concomitant]
     Active Substance: DARBEPOETIN ALFA
     Dosage: 30 MICROGRAMS IN 0.3ML, ONCE A WEEK ON THE SAME DAY EACH WEEK
     Route: 058
  11. FOLIC ACID [Concomitant]
     Active Substance: FOLIC ACID
     Dosage: 5 MG, DAILY AT 10AM
     Route: 048
  12. FUROSEMIDE [Concomitant]
     Active Substance: FUROSEMIDE
     Dosage: 20 MG, IN THE EVENING
     Route: 042
  13. FUROSEMIDE [Concomitant]
     Active Substance: FUROSEMIDE
     Dosage: 40 MG, TWICE A DAY AT 8.00AM AND 12 NOON
     Route: 042
  14. BUTYLSCOPOLAMINE BROMIDE [Concomitant]
     Active Substance: BUTYLSCOPOLAMINE BROMIDE
     Dosage: 20 MG, 4X/DAY, PRN
     Route: 048
  15. LEVOFLOXACIN [Concomitant]
     Active Substance: LEVOFLOXACIN
     Dosage: 500 MG, 1X/DAY
     Route: 048
  16. MELATONIN [Concomitant]
     Active Substance: MELATONIN
     Dosage: 2 MG, NOCTE
     Route: 048
  17. MEROPENEM [Concomitant]
     Active Substance: MEROPENEM
     Dosage: 900 MG, 2X/DAY
     Route: 042
  18. MORPHINE SULFATE [Concomitant]
     Active Substance: MORPHINE SULFATE
     Dosage: 4 MG, ENTERAL, EVERY SIX HOURS, PRN
  19. NYSTATIN [Concomitant]
     Active Substance: NYSTATIN
     Dosage: 1 ML, 4X/DAY
     Route: 048
  20. OCTENISAN CLEANING [Concomitant]
     Dosage: 1 APPLICATION, TOPICAL, NOON
     Route: 061
  21. OLIVE OIL [Concomitant]
     Active Substance: OLIVE OIL
     Dosage: 6 DROP(S), BOTH EARS, TWICE A DAY
  22. PANTOPRAZOLE [Concomitant]
     Active Substance: PANTOPRAZOLE
     Dosage: 40 MG, DAILY
     Route: 042
  23. ACETAMINOPHEN [Concomitant]
     Active Substance: ACETAMINOPHEN
     Dosage: 500 MG, 4X/DAY, PRN
  24. PEPTAC [CALCIUM CARBONATE;SODIUM ALGINATE;SODIUM BICARBONATE] [Concomitant]
     Dosage: 10 ML, ORAL, EVERY FOUR HOURS, PRN
     Route: 048
  25. PREDNISOLONE [Concomitant]
     Active Substance: PREDNISOLONE
     Dosage: 30 MG, DAILY AT 10AM
     Route: 048
  26. PYRIDOXINE [Concomitant]
     Active Substance: PYRIDOXINE
     Dosage: 50 MG, 2X/DAY
     Route: 048
  27. RIFAMPIN [Concomitant]
     Active Substance: RIFAMPIN
     Dosage: 600 MG, DAILY AT 10AM
  28. SACUBITRIL\VALSARTAN [Concomitant]
     Active Substance: SACUBITRIL\VALSARTAN
     Dosage: 1 DF, 2X/DAY AT 08:00 AND 20:00
     Route: 048
  29. ALBUTEROL [Concomitant]
     Active Substance: ALBUTEROL
     Dosage: 5 MG, AS NEEDED
     Route: 055
  30. SIMPLE LINCTUS [Concomitant]
     Active Substance: AMARANTH\CHLOROFORM\CITRIC ACID MONOHYDRATE\PIMPINELLA ANISUM WHOLE
     Dosage: 5 ML, 4X/DAY PRN
     Route: 048
  31. SODIUM BICARBONATE [Concomitant]
     Active Substance: SODIUM BICARBONATE
     Dosage: 500 MG, 3X/DAY AT 0800, 1400 AND 2200
     Route: 048
  32. SODIUM CHLORIDE [Concomitant]
     Active Substance: SODIUM CHLORIDE
     Dosage: (NEBULISED USE), 3 ML, INHALED, FOUR TIMES A DAY, PRN
     Route: 055
  33. SODIUM CHLORIDE [Concomitant]
     Active Substance: SODIUM CHLORIDE
     Dosage: STERILE HYPERTONIC SOLUTION FOR NEBULISATION (NEBUSAL), 4 ML, INHALED, ONCE A DAY, PRN
     Route: 055
  34. SUCRALFATE [Concomitant]
     Active Substance: SUCRALFATE
     Dosage: 1 G, 4X/DAY BEFORE MEALS AND NOCTE, PRN
  35. TAUROLIDINE [Concomitant]
     Active Substance: TAUROLIDINE
     Dosage: 2 ML, IV LINE LOCK, AS REQUIRED, PRN
     Route: 042

REACTIONS (2)
  - Off label use [Unknown]
  - Lactic acidosis [Recovered/Resolved]

NARRATIVE: CASE EVENT DATE: 20241019
